FAERS Safety Report 7515034-8 (Version None)
Quarter: 2011Q2

REPORT INFORMATION
  Report Type: 
  Country: None (occurrence: None)
  Receive Date: 20110601
  Receipt Date: 20110523
  Transmission Date: 20111010
  Serious: Yes (Hospitalization)
  Sender: FDA-Public Use
  Company Number: PHHY2011US45318

PATIENT
  Age: 24 Year
  Sex: Male

DRUGS (2)
  1. TOBI [Suspect]
     Dosage: 300 MG, BID, 28 DAYS ON AND 28 DAYS OFF
     Dates: start: 20101116
  2. PULMOZYME [Concomitant]
     Dosage: 2.5 MG, QD

REACTIONS (1)
  - RENAL FAILURE [None]
